FAERS Safety Report 25632479 (Version 1)
Quarter: 2025Q3

REPORT INFORMATION
  Report Type: Report from Study
  Country: US (occurrence: US)
  Receive Date: 20250801
  Receipt Date: 20250801
  Transmission Date: 20251021
  Serious: Yes (Hospitalization)
  Sender: ROCHE
  Company Number: US-ROCHE-10000346612

PATIENT
  Age: 43 Year
  Sex: Female
  Weight: 83.91 kg

DRUGS (3)
  1. RITUXAN [Suspect]
     Active Substance: RITUXIMAB
     Indication: Neuromyelitis optica spectrum disorder
     Dosage: STARTED --2016 OR EARLY --2017 AND WAS ON IT FOR ABOUT 5 YEARS
     Route: 042
  2. ENSPRYNG [Suspect]
     Active Substance: SATRALIZUMAB-MWGE
     Indication: Neuromyelitis optica spectrum disorder
     Route: 058
  3. SOLIRIS [Concomitant]
     Active Substance: ECULIZUMAB
     Indication: Neuromyelitis optica spectrum disorder
     Dosage: STARTED  MAYBE IN --2022, LAST DOSE IN --2023
     Route: 042
     Dates: start: 2022, end: 2023

REACTIONS (7)
  - Pneumonia [Recovered/Resolved]
  - Mastitis [Recovered/Resolved]
  - Nasopharyngitis [Recovered/Resolved]
  - Influenza [Recovered/Resolved]
  - Skin laceration [Recovered/Resolved]
  - Immunosuppression [Recovered/Resolved]
  - Off label use [Unknown]

NARRATIVE: CASE EVENT DATE: 20210601
